FAERS Safety Report 16686983 (Version 1)
Quarter: 2019Q3

REPORT INFORMATION
  Report Type: Report from Study
  Country: IT (occurrence: IT)
  Receive Date: 20190809
  Receipt Date: 20190809
  Transmission Date: 20191004
  Serious: Yes (Other)
  Sender: FDA-Public Use
  Company Number: IT-ACCORD-150913

PATIENT
  Age: 45 Year
  Sex: Male

DRUGS (2)
  1. QUETIAPINE. [Suspect]
     Active Substance: QUETIAPINE
     Indication: AFFECTIVE DISORDER
     Route: 048
     Dates: start: 20190418
  2. DEPAKIN CHRONO [Suspect]
     Active Substance: VALPROIC ACID
     Indication: AFFECTIVE DISORDER
     Dosage: STRENGTH: 500 MG
     Route: 048
     Dates: start: 20190419

REACTIONS (1)
  - Blindness [Not Recovered/Not Resolved]

NARRATIVE: CASE EVENT DATE: 20190801
